FAERS Safety Report 9926432 (Version 3)
Quarter: 2014Q2

REPORT INFORMATION
  Report Type: Spontaneous
  Country: AT (occurrence: AT)
  Receive Date: 20140226
  Receipt Date: 20140516
  Transmission Date: 20141212
  Serious: Yes (Other)
  Sender: FDA-Public Use
  Company Number: AT-ASTRAZENECA-2014SE12304

PATIENT
  Age: 73 Year
  Sex: Female

DRUGS (31)
  1. SEROQUEL [Suspect]
     Indication: ANTIDEPRESSANT THERAPY
     Route: 048
     Dates: start: 20130521, end: 20130521
  2. SEROQUEL [Suspect]
     Indication: ANTIDEPRESSANT THERAPY
     Route: 048
     Dates: start: 20130522, end: 20130522
  3. SEROQUEL [Suspect]
     Indication: ANTIDEPRESSANT THERAPY
     Route: 048
     Dates: start: 20130523, end: 20130524
  4. SEROQUEL [Suspect]
     Indication: ANTIDEPRESSANT THERAPY
     Route: 048
     Dates: start: 20130527, end: 20130527
  5. SEROQUEL [Suspect]
     Indication: ANTIDEPRESSANT THERAPY
     Route: 048
     Dates: start: 20130528, end: 20130528
  6. SEROQUEL [Suspect]
     Indication: ANTIDEPRESSANT THERAPY
     Route: 048
     Dates: start: 20130529, end: 20130603
  7. CYMBALTA [Suspect]
     Route: 048
     Dates: start: 201301, end: 20130619
  8. CYMBALTA [Suspect]
     Route: 065
     Dates: start: 20130620, end: 20130624
  9. CYMBALTA [Suspect]
     Route: 065
     Dates: start: 20130625, end: 20130627
  10. TOLVON [Suspect]
     Route: 048
     Dates: start: 201301, end: 20130623
  11. NEURONTIN [Suspect]
     Route: 048
     Dates: start: 201301, end: 20130609
  12. NEURONTIN [Suspect]
     Route: 065
     Dates: start: 20130610, end: 20130616
  13. XANOR [Suspect]
     Route: 048
     Dates: start: 20130427, end: 20130522
  14. XANOR [Suspect]
     Route: 048
     Dates: start: 20130523, end: 20130602
  15. XANOR [Suspect]
     Route: 065
     Dates: start: 20130603, end: 20130603
  16. XANOR [Suspect]
     Route: 065
     Dates: start: 20130604, end: 20130616
  17. PANTOLOC [Suspect]
     Route: 048
     Dates: end: 20130707
  18. PANTOLOC [Suspect]
     Route: 065
     Dates: start: 20130708
  19. ULCOGANT [Suspect]
     Route: 048
     Dates: start: 20130427, end: 20130527
  20. ZOLDEM [Concomitant]
     Route: 048
     Dates: end: 20130806
  21. PSYCHOPAX [Concomitant]
     Route: 048
     Dates: start: 20130427, end: 20130518
  22. PSYCHOPAX [Concomitant]
     Route: 048
     Dates: start: 20130519, end: 20130519
  23. PSYCHOPAX [Concomitant]
     Route: 048
     Dates: start: 20130520, end: 20130520
  24. EUTHYROX [Concomitant]
     Route: 048
     Dates: end: 20130713
  25. THROMBO ASA [Concomitant]
     Route: 048
     Dates: start: 20130518
  26. VALDOXAN [Concomitant]
     Dates: start: 20130524, end: 20130527
  27. VALDOXAN [Concomitant]
     Dates: start: 20130528, end: 20131103
  28. ZYPREXA [Concomitant]
     Dates: start: 20130524, end: 20130525
  29. THYREX [Concomitant]
     Dates: start: 20130714
  30. DEPAKINE CR [Concomitant]
     Route: 048
     Dates: start: 201301, end: 20130605
  31. DEPAKINE CR [Concomitant]
     Route: 048
     Dates: start: 20130606, end: 20130630

REACTIONS (2)
  - Aphthous stomatitis [Recovered/Resolved]
  - Dry mouth [Recovered/Resolved]
